FAERS Safety Report 9458535 (Version 1)
Quarter: 2013Q3

REPORT INFORMATION
  Report Type: Spontaneous
  Country: US (occurrence: None)
  Receive Date: 20130813
  Receipt Date: 20130813
  Transmission Date: 20140515
  Serious: Yes (Life-Threatening, Hospitalization, Disabling)
  Sender: FDA-Public Use
  Company Number: None

PATIENT
  Age: 77 Year
  Sex: Male
  Weight: 113.4 kg

DRUGS (1)
  1. PRADAXA 150MG BOEHRINGER INGELHEIM [Suspect]
     Dosage: 1 PILL TWICE DAILY TAKEN BY MOUTH
     Route: 048
     Dates: start: 20130629, end: 20130702

REACTIONS (2)
  - Cerebrovascular accident [None]
  - Brain stem haemorrhage [None]
